FAERS Safety Report 8057378-X (Version None)
Quarter: 2012Q1

REPORT INFORMATION
  Report Type: 
  Country: None (occurrence: None)
  Receive Date: 20120119
  Receipt Date: 20120109
  Transmission Date: 20120608
  Serious: Yes (Hospitalization, Other)
  Sender: FDA-Public Use
  Company Number: US-ELI_LILLY_AND_COMPANY-US201201002572

PATIENT
  Sex: Female
  Weight: 76.644 kg

DRUGS (7)
  1. ESTRADERM [Concomitant]
     Indication: HORMONE REPLACEMENT THERAPY
     Dosage: UNK
     Route: 067
  2. VITAMINS NOS [Concomitant]
     Indication: GENERAL PHYSICAL HEALTH DETERIORATION
     Dosage: UNK
  3. BYETTA [Suspect]
     Indication: TYPE 2 DIABETES MELLITUS
     Dosage: 10 UG, BID
     Route: 058
     Dates: end: 20111223
  4. VENLAFAXINE [Concomitant]
     Indication: POSTMENOPAUSE
     Dosage: 75 MG, QD
     Route: 048
  5. LIPITOR [Concomitant]
     Indication: BLOOD CHOLESTEROL
     Dosage: 10 MG, QD
     Route: 048
  6. GLUCOVANCE [Concomitant]
     Indication: TYPE 2 DIABETES MELLITUS
     Dosage: 2 DF, BID
     Route: 048
  7. LOSARTAN POTASSIUM [Concomitant]
     Indication: HYPERTENSION
     Dosage: 100 MG, QD
     Route: 048

REACTIONS (11)
  - ERYTHEMA [None]
  - BLOOD POTASSIUM DECREASED [None]
  - SOMNOLENCE [None]
  - PRURITUS [None]
  - RASH [None]
  - WHITE BLOOD CELL COUNT INCREASED [None]
  - SWOLLEN TONGUE [None]
  - URTICARIA [None]
  - BLOOD PRESSURE DECREASED [None]
  - ANAPHYLACTIC REACTION [None]
  - BLOOD GLUCOSE DECREASED [None]
